FAERS Safety Report 11797940 (Version 1)
Quarter: 2015Q4

REPORT INFORMATION
  Report Type: Spontaneous
  Country: US (occurrence: US)
  Receive Date: 20151203
  Receipt Date: 20151203
  Transmission Date: 20160305
  Serious: Yes (Hospitalization)
  Sender: FDA-Public Use
  Company Number: US-STANDARD HOMEOPATHIC COMPANY-1045016

PATIENT
  Age: 10 Month
  Sex: Female

DRUGS (1)
  1. COLD N COUGH 4 KIDS [Suspect]
     Active Substance: HOMEOPATHICS
     Indication: NASOPHARYNGITIS
     Route: 048

REACTIONS (6)
  - Dyspnoea [Unknown]
  - Lethargy [None]
  - Drug administered to patient of inappropriate age [None]
  - Seizure [None]
  - Weaning failure [None]
  - Unresponsive to stimuli [Unknown]

NARRATIVE: CASE EVENT DATE: 20151121
